FAERS Safety Report 7268022-3 (Version None)
Quarter: 2011Q1

REPORT INFORMATION
  Report Type: 
  Country: None (occurrence: None)
  Receive Date: 20110201
  Receipt Date: 20101015
  Transmission Date: 20110831
  Serious: No
  Sender: FDA-Public Use
  Company Number: US-BAYER-201022602BCC

PATIENT
  Sex: Female
  Weight: 61.364 kg

DRUGS (7)
  1. ALEVE [Suspect]
     Indication: ARTHRITIS
     Dosage: 2 DF, BID
     Route: 048
     Dates: start: 20101005, end: 20101014
  2. ALEVE [Suspect]
     Dosage: 1 DF, BID
     Route: 048
     Dates: start: 20101015
  3. CALTRATE [CALCIUM CARBONATE] [Concomitant]
     Dosage: 1 DF, QD
  4. CHANTIX [Concomitant]
     Dosage: UNK UNK, PRN
  5. MULTIVITAMINS, OTHER COMBINATIONS [Concomitant]
  6. ALEVE [Suspect]
     Dosage: 2 DF, UNK
     Route: 048
     Dates: start: 20101004, end: 20101004
  7. MULTI-VITAMINS [Concomitant]

REACTIONS (1)
  - NO ADVERSE EVENT [None]
